FAERS Safety Report 7862852-2 (Version None)
Quarter: 2011Q4

REPORT INFORMATION
  Report Type: 
  Country: None (occurrence: None)
  Receive Date: 20111027
  Receipt Date: 20101116
  Transmission Date: 20120403
  Serious: No
  Sender: FDA-Public Use
  Company Number: US-AMGEN-USASP2010005117

PATIENT
  Sex: Female

DRUGS (2)
  1. ENBREL [Suspect]
     Indication: RHEUMATOID ARTHRITIS
     Dates: start: 20100501, end: 20101001
  2. METHOTREXATE (TREXALL) [Concomitant]
     Dates: start: 20080101

REACTIONS (3)
  - IRRITABLE BOWEL SYNDROME [None]
  - DIARRHOEA [None]
  - HYPERSENSITIVITY [None]
